FAERS Safety Report 9630960 (Version 1)
Quarter: 2013Q4

REPORT INFORMATION
  Report Type: Spontaneous
  Country: US (occurrence: None)
  Receive Date: 20131016
  Receipt Date: 20131016
  Transmission Date: 20140711
  Serious: Yes (Life-Threatening, Other)
  Sender: FDA-Public Use
  Company Number: None

PATIENT
  Age: 17 Year
  Sex: Female
  Weight: 65.77 kg

DRUGS (2)
  1. YAZ [Suspect]
     Indication: ACNE
     Dosage: 3 MG/0.02MG, 28, DAILY, BY MOUTH
     Route: 048
     Dates: start: 20130801, end: 20131013
  2. YAZ [Suspect]
     Indication: CONTRACEPTION
     Dosage: 3 MG/0.02MG, 28, DAILY, BY MOUTH
     Route: 048
     Dates: start: 20130801, end: 20131013

REACTIONS (7)
  - Delusion [None]
  - Suspiciousness [None]
  - Persecutory delusion [None]
  - Depression [None]
  - Suicidal ideation [None]
  - Incorrect dose administered [None]
  - Vomiting [None]
